FAERS Safety Report 14298895 (Version 1)
Quarter: 2017Q4

REPORT INFORMATION
  Report Type: Spontaneous
  Country: US (occurrence: US)
  Receive Date: 20171218
  Receipt Date: 20171218
  Transmission Date: 20180321
  Serious: No
  Sender: FDA-Public Use
  Company Number: None

PATIENT
  Age: 61 Year
  Sex: Female
  Weight: 61.23 kg

DRUGS (9)
  1. RECLAST [Suspect]
     Active Substance: ZOLEDRONIC ACID
     Indication: OSTEOPOROSIS
     Dates: start: 20171031
  2. PROTONIX [Concomitant]
     Active Substance: PANTOPRAZOLE SODIUM
  3. ROSUVASTATIN. [Concomitant]
     Active Substance: ROSUVASTATIN
  4. LIALDA [Concomitant]
     Active Substance: MESALAMINE
  5. LEXAPRO [Concomitant]
     Active Substance: ESCITALOPRAM OXALATE
  6. CALCIUM [Concomitant]
     Active Substance: CALCIUM
  7. CALCIUM + PROBIOTICS [Concomitant]
  8. WOMEN ONE A DAY [Concomitant]
  9. VITAMIN [Concomitant]
     Active Substance: VITAMINS

REACTIONS (9)
  - Pain in jaw [None]
  - Arthralgia [None]
  - Bone pain [None]
  - Neck pain [None]
  - Chills [None]
  - Influenza like illness [None]
  - Pyrexia [None]
  - Eye pain [None]
  - Headache [None]

NARRATIVE: CASE EVENT DATE: 20171101
